FAERS Safety Report 9331686 (Version 3)
Quarter: 2014Q2

REPORT INFORMATION
  Report Type: Spontaneous
  Country: US (occurrence: US)
  Receive Date: 20130605
  Receipt Date: 20140529
  Transmission Date: 20141212
  Serious: No
  Sender: FDA-Public Use
  Company Number: US-PFIZER INC-2013170309

PATIENT
  Age: 47 Year
  Sex: Female
  Weight: 113.38 kg

DRUGS (2)
  1. CELEBREX [Suspect]
     Indication: ARTHRALGIA
     Dosage: 200 MG ONCE A DAY IN THE MORNING
     Route: 048
     Dates: start: 201305, end: 20130524
  2. IBUPROFEN [Concomitant]
     Dosage: 800 MG, 3X/DAY

REACTIONS (1)
  - Pain [Not Recovered/Not Resolved]
